FAERS Safety Report 4768317-9 (Version None)
Quarter: 2005Q3

REPORT INFORMATION
  Report Type: 
  Country: None (occurrence: None)
  Receive Date: 20050914
  Receipt Date: 20050811
  Transmission Date: 20060218
  Serious: Yes (Life-Threatening, Hospitalization)
  Sender: FDA-Public Use
  Company Number: 2005AP04376

PATIENT
  Age: 14556 Day
  Sex: Male

DRUGS (5)
  1. SEROQUEL [Suspect]
     Indication: DEPRESSION
     Route: 048
     Dates: start: 20050609, end: 20050726
  2. LIMAS [Suspect]
     Indication: DEPRESSION
     Route: 048
     Dates: start: 20050609, end: 20050726
  3. HIRNAMIN [Concomitant]
     Indication: DEPRESSION
     Route: 048
     Dates: start: 20050609
  4. SILECE [Concomitant]
     Indication: DEPRESSION
     Route: 048
     Dates: start: 20050609
  5. VEGATAMIN A [Concomitant]
     Indication: DEPRESSION
     Route: 048
     Dates: start: 20050630

REACTIONS (2)
  - DRUG ERUPTION [None]
  - GRANULOCYTOPENIA [None]
